FAERS Safety Report 23226672 (Version 2)
Quarter: 2023Q4

REPORT INFORMATION
  Report Type: Spontaneous
  Country: US (occurrence: US)
  Receive Date: 20231124
  Receipt Date: 20231213
  Transmission Date: 20240110
  Serious: Yes (Other)
  Sender: FDA-Public Use
  Company Number: US-SUN PHARMACEUTICAL INDUSTRIES LTD-2023R1-419563

PATIENT
  Age: 25 Year
  Sex: Female

DRUGS (1)
  1. CEQUA [Suspect]
     Active Substance: CYCLOSPORINE
     Indication: Dry eye
     Dosage: 1 DROP, BID, BOTH EYES
     Route: 047
     Dates: start: 20231103, end: 20231103

REACTIONS (3)
  - Periorbital cellulitis [Recovered/Resolved]
  - Keratitis [Recovered/Resolved]
  - Incorrect product administration duration [Unknown]
